FAERS Safety Report 8129555-0 (Version None)
Quarter: 2012Q1

REPORT INFORMATION
  Report Type: 
  Country: None (occurrence: None)
  Receive Date: 20120210
  Receipt Date: 20120201
  Transmission Date: 20120608
  Serious: Yes (Death)
  Sender: FDA-Public Use
  Company Number: US-GLAXOSMITHKLINE-A0853002A

PATIENT
  Age: 79 Year
  Sex: Female

DRUGS (3)
  1. PROMACTA [Suspect]
     Indication: AUTOIMMUNE THROMBOCYTOPENIA
     Dosage: 50MG PER DAY
     Route: 048
     Dates: start: 20100512, end: 20100614
  2. CORTICOSTEROIDS [Concomitant]
  3. IMMUNE GLOBULIN INTRAVENOUS (HUMAN) [Concomitant]
     Indication: IDIOPATHIC THROMBOCYTOPENIC PURPURA

REACTIONS (6)
  - HAEMORRHAGE [None]
  - THROMBOCYTOPENIA [None]
  - NAUSEA [None]
  - DRUG INEFFECTIVE [None]
  - INCREASED TENDENCY TO BRUISE [None]
  - MYELODYSPLASTIC SYNDROME [None]
